FAERS Safety Report 11989817 (Version 1)
Quarter: 2016Q1

REPORT INFORMATION
  Report Type: Spontaneous
  Country: US (occurrence: US)
  Receive Date: 20160202
  Receipt Date: 20160202
  Transmission Date: 20160526
  Serious: No
  Sender: FDA-Public Use
  Company Number: US-ROCHE-1616722

PATIENT
  Age: 68 Year
  Sex: Female

DRUGS (3)
  1. ESTRADIOL. [Concomitant]
     Active Substance: ESTRADIOL
  2. FELODIPINE. [Concomitant]
     Active Substance: FELODIPINE
  3. NUTROPIN AQ [Suspect]
     Active Substance: SOMATROPIN
     Indication: DWARFISM
     Route: 058
     Dates: start: 20141009

REACTIONS (2)
  - Drug dose omission [Unknown]
  - Device malfunction [Unknown]

NARRATIVE: CASE EVENT DATE: 20150721
